FAERS Safety Report 21907642 (Version 1)
Quarter: 2023Q1

REPORT INFORMATION
  Report Type: Report from Study
  Country: AR (occurrence: AR)
  Receive Date: 20230125
  Receipt Date: 20230125
  Transmission Date: 20230418
  Serious: Yes (Hospitalization)
  Sender: FDA-Public Use
  Company Number: AR-ABBVIE-4280500

PATIENT
  Sex: Male

DRUGS (1)
  1. HUMIRA [Suspect]
     Active Substance: ADALIMUMAB
     Indication: Hidradenitis
     Route: 058
     Dates: start: 20210902, end: 20221124

REACTIONS (9)
  - Weight decreased [Unknown]
  - Decreased appetite [Unknown]
  - Haematuria [Not Recovered/Not Resolved]
  - Pyrexia [Unknown]
  - Eczema [Not Recovered/Not Resolved]
  - Gastric disorder [Unknown]
  - Vomiting [Unknown]
  - Renal injury [Unknown]
  - Gastric polyps [Not Recovered/Not Resolved]
